FAERS Safety Report 20142029 (Version 3)
Quarter: 2022Q1

REPORT INFORMATION
  Report Type: Report from Study
  Country: DE (occurrence: DE)
  Receive Date: 20211202
  Receipt Date: 20220107
  Transmission Date: 20220423
  Serious: Yes (Life-Threatening, Hospitalization, Other)
  Sender: FDA-Public Use
  Company Number: DE-002147023-PHHY2018DE041609

PATIENT
  Sex: Female

DRUGS (8)
  1. LETROZOLE [Suspect]
     Active Substance: LETROZOLE
     Indication: Breast cancer metastatic
     Dosage: 2.5 MILLIGRAM (2.5 MG, UNK)
     Route: 048
     Dates: start: 20180119, end: 20181029
  2. RAMIPRIL [Suspect]
     Active Substance: RAMIPRIL
     Indication: Hypertension
     Dosage: 7.5 MILLIGRAM, QD (7.5 MG, QD)
     Route: 048
     Dates: start: 2017, end: 20180124
  3. RAMIPRIL [Suspect]
     Active Substance: RAMIPRIL
     Dosage: 5 MILLIGRAM, QD, ( 1 ?-0-0)
     Route: 048
     Dates: start: 2017, end: 20180124
  4. KISQALI [Suspect]
     Active Substance: RIBOCICLIB
     Indication: Breast cancer metastatic
     Dosage: 600 MILLIGRAM, QD (600 MG,QD)/05-FEB-2018
     Route: 048
     Dates: end: 20180820
  5. KISQALI [Suspect]
     Active Substance: RIBOCICLIB
     Dosage: UNK (600 UNK)
     Route: 065
  6. KISQALI [Suspect]
     Active Substance: RIBOCICLIB
     Dosage: 200 MG, (SCHEMA 21 DAYS INTAKE, THEN 7 DAYS PAUSE)/23-OCT-2018
     Route: 048
     Dates: end: 20181029
  7. KISQALI [Suspect]
     Active Substance: RIBOCICLIB
     Dosage: 400 MG, (SCHEMA 21 DAYS INTAKE, THEN 7 DAYS PAUSE)/09-OCT-2018
     Route: 048
     Dates: end: 20181014
  8. KISQALI [Suspect]
     Active Substance: RIBOCICLIB
     Dosage: 600 MG (SCHEMA 21 DAYS INTAKE, THEN 7 DAYS PAUSE)/19-JAN-2018
     Route: 048
     Dates: end: 20180124

REACTIONS (2)
  - Angioedema [Recovered/Resolved]
  - Sleep disorder [Recovered/Resolved]

NARRATIVE: CASE EVENT DATE: 20180124
